FAERS Safety Report 10618642 (Version 2)
Quarter: 2014Q4

REPORT INFORMATION
  Report Type: Spontaneous
  Country: JP (occurrence: JP)
  Receive Date: 20141202
  Receipt Date: 20141217
  Transmission Date: 20150529
  Serious: Yes (Other)
  Sender: FDA-Public Use
  Company Number: PHHY2014JP156158

PATIENT
  Age: 65 Year
  Sex: Female

DRUGS (3)
  1. AREDIA [Suspect]
     Active Substance: PAMIDRONATE DISODIUM
     Indication: METASTASES TO BONE
     Dosage: UNK
     Route: 065
  2. ZOMETA [Suspect]
     Active Substance: ZOLEDRONIC ACID
     Indication: METASTASES TO BONE
     Dosage: UNK
     Route: 042
  3. NOLVADEX//TAMOXIFEN [Concomitant]
     Indication: METASTASES TO BONE
     Dosage: UNK
     Route: 065

REACTIONS (6)
  - Soft tissue inflammation [Recovering/Resolving]
  - Exposed bone in jaw [Recovering/Resolving]
  - Osteomyelitis [Recovering/Resolving]
  - Purulent discharge [Recovering/Resolving]
  - Osteonecrosis of jaw [Recovering/Resolving]
  - Impaired healing [Recovering/Resolving]
